FAERS Safety Report 11119683 (Version 1)
Quarter: 2015Q2

REPORT INFORMATION
  Report Type: Spontaneous
  Country: BR (occurrence: BR)
  Receive Date: 20150518
  Receipt Date: 20150518
  Transmission Date: 20150821
  Serious: Yes (Other)
  Sender: FDA-Public Use
  Company Number: BR-GLAXOSMITHKLINE-BR2015GSK064610

PATIENT
  Age: 1 Year
  Sex: Female
  Weight: 11 kg

DRUGS (2)
  1. AEROLIN [Suspect]
     Active Substance: ALBUTEROL
     Dosage: UNK
  2. AEROLIN [Suspect]
     Active Substance: ALBUTEROL
     Indication: BRONCHIOLITIS
     Dosage: 16 PUFF(S), QD
     Route: 055
     Dates: start: 201502

REACTIONS (5)
  - Delirium [Unknown]
  - Condition aggravated [Unknown]
  - Overdose [Unknown]
  - Tremor [Unknown]
  - Agitation [Unknown]

NARRATIVE: CASE EVENT DATE: 20150510
